FAERS Safety Report 5901006-3 (Version None)
Quarter: 2008Q3

REPORT INFORMATION
  Report Type: 
  Country: None (occurrence: None)
  Receive Date: 20080829
  Receipt Date: 20080722
  Transmission Date: 20090109
  Serious: No
  Sender: FDA-Public Use
  Company Number: PHEH2008US06607

PATIENT
  Age: 60 Year
  Sex: Male
  Weight: 96.6 kg

DRUGS (1)
  1. EXJADE [Suspect]
     Indication: SIDEROBLASTIC ANAEMIA
     Dosage: 1000 MG, QD, ORAL
     Route: 048
     Dates: start: 20080307, end: 20080722

REACTIONS (2)
  - GINGIVAL BLEEDING [None]
  - GINGIVAL HYPERPLASIA [None]
